FAERS Safety Report 22318908 (Version 1)
Quarter: 2023Q2

REPORT INFORMATION
  Report Type: Spontaneous
  Country: US (occurrence: None)
  Receive Date: 20230515
  Receipt Date: 20230515
  Transmission Date: 20230722
  Serious: Yes (Hospitalization, Other)
  Sender: FDA-Public Use
  Company Number: US-MICRO LABS LIMITED-ML2023-02588

PATIENT
  Age: 21 Year
  Sex: Male

DRUGS (13)
  1. BUPROPION [Suspect]
     Active Substance: BUPROPION
     Indication: Attention deficit hyperactivity disorder
     Dosage: IN THE LAST OUTPATIENT VISIT 6 WEEKS BEFORE PRESENTATION
  2. BUPROPION [Suspect]
     Active Substance: BUPROPION
     Indication: Major depression
     Dosage: BUPROPION DOSE WERE INCREASED FROM 150 MG TO 300 MG
  3. BUPROPION [Suspect]
     Active Substance: BUPROPION
     Dosage: AFTER 3 MONTHS
  4. ATOMOXETINE [Suspect]
     Active Substance: ATOMOXETINE
     Indication: Attention deficit hyperactivity disorder
     Dosage: IN THE LAST OUTPATIENT VISIT 6 WEEKS BEFORE PRESENTATION
  5. ATOMOXETINE [Suspect]
     Active Substance: ATOMOXETINE
     Indication: Major depression
     Dosage: ATOMOXETINE DOSE WERE INCREASED FROM 40 MG TO 60 MG
  6. ATOMOXETINE [Suspect]
     Active Substance: ATOMOXETINE
     Dosage: AFTER 3 MONTHS
  7. QUETIAPINE [Suspect]
     Active Substance: QUETIAPINE
     Indication: Insomnia
  8. QUETIAPINE [Suspect]
     Active Substance: QUETIAPINE
     Dosage: REINITIATED AND TITRATED UP TO 400 MG AT BEDTIME
  9. QUETIAPINE [Suspect]
     Active Substance: QUETIAPINE
     Dosage: AFTER 3 MONTHS QUETIAPINE 200 MG NIGHTLY
  10. ALPRAZOLAM [Concomitant]
     Active Substance: ALPRAZOLAM
     Indication: Anxiety
  11. LORAZEPAM [Concomitant]
     Active Substance: LORAZEPAM
     Indication: Agitation
     Dosage: 1 MG EVERY 8 HOURS AS NEEDED
  12. LORAZEPAM [Concomitant]
     Active Substance: LORAZEPAM
     Dosage: LORAZEPAM WAS TAPERED DOWN TO 0.5 MG DAILY
  13. DIVALPROEX SODIUM [Concomitant]
     Active Substance: DIVALPROEX SODIUM
     Indication: Product used for unknown indication
     Dosage: TITRATED UP TO 1500-MG TOTAL DAILY DOSE.

REACTIONS (12)
  - Toxicity to various agents [Unknown]
  - Seizure [Recovered/Resolved]
  - Psychotic disorder [Recovered/Resolved]
  - Mania [Recovered/Resolved]
  - Restlessness [Unknown]
  - Agitation [Unknown]
  - Anxiety [Unknown]
  - Insomnia [Unknown]
  - Hallucination, auditory [Unknown]
  - Hallucination, visual [Unknown]
  - Drug interaction [Unknown]
  - Off label use [Unknown]
